FAERS Safety Report 6475155-8 (Version None)
Quarter: 2009Q4

REPORT INFORMATION
  Report Type: 
  Country: None (occurrence: None)
  Receive Date: 20091204
  Receipt Date: 20090504
  Transmission Date: 20100525
  Serious: Yes (Hospitalization)
  Sender: FDA-Public Use
  Company Number: HR-ELI_LILLY_AND_COMPANY-HR200903003946

PATIENT
  Sex: Male

DRUGS (6)
  1. ZYPREXA [Suspect]
     Indication: SCHIZOPHRENIA
     Dosage: 20 MG, 2/D
     Route: 048
     Dates: start: 20080110, end: 20080201
  2. ZYPREXA [Suspect]
     Dosage: 15 MG, DAILY (1/D)
     Route: 048
     Dates: start: 20080214, end: 20080227
  3. ZYPREXA [Suspect]
     Dosage: 30 MG, DAILY (1/D)
     Route: 048
     Dates: start: 20080228, end: 20080301
  4. DIAZEPAM [Concomitant]
     Indication: SCHIZOPHRENIA
     Dosage: 10 MG, 2/D
     Dates: start: 20080110
  5. RISPERIDONE [Concomitant]
  6. HALOPERIDOL [Concomitant]

REACTIONS (3)
  - HYPERGLYCAEMIA [None]
  - OVERDOSE [None]
  - PSYCHOTIC DISORDER [None]
